FAERS Safety Report 8267202 (Version 3)
Quarter: 2012Q4

REPORT INFORMATION
  Report Type: 
  Country: GB (occurrence: GB)
  Receive Date: 20111129
  Receipt Date: 20121016
  Transmission Date: 20130627
  Serious: Yes (Death)
  Sender: FDA-Public Use
  Company Number: GB-GLAXOSMITHKLINE-B0764105A

PATIENT
  Age: 18 Year
  Sex: Female
  Weight: 69 kg

DRUGS (8)
  1. LAMOTRIGINE [Suspect]
     Indication: MIGRAINE
     Dosage: 25MG Twice per day
     Route: 048
     Dates: start: 20101223
  2. METHOTREXATE [Concomitant]
     Dates: start: 201012
  3. NAPROXEN [Concomitant]
  4. PREGABALIN [Concomitant]
  5. PARACETAMOL [Concomitant]
  6. OMEPRAZOLE [Concomitant]
  7. MORPHINE [Concomitant]
  8. METHYLPREDNISOLONE [Concomitant]
     Indication: ARTHRITIS
     Route: 042

REACTIONS (8)
  - Drug reaction with eosinophilia and systemic symptoms [Fatal]
  - Disseminated intravascular coagulation [Not Recovered/Not Resolved]
  - Multi-organ failure [Not Recovered/Not Resolved]
  - Brain oedema [Not Recovered/Not Resolved]
  - Pyrexia [Not Recovered/Not Resolved]
  - Rash [Not Recovered/Not Resolved]
  - Arthralgia [Not Recovered/Not Resolved]
  - Balance disorder [Not Recovered/Not Resolved]
